FAERS Safety Report 10811856 (Version 1)
Quarter: 2015Q1

REPORT INFORMATION
  Report Type: Spontaneous
  Country: NL (occurrence: None)
  Receive Date: 20150212
  Receipt Date: 20150212
  Transmission Date: 20150721
  Serious: Yes (Other)
  Sender: FDA-Public Use
  Company Number: 2015HINLIT0118

PATIENT
  Age: 33 Year
  Sex: Female

DRUGS (3)
  1. STAVUDINE (STAVUDINE) UNKNOWN [Suspect]
     Active Substance: STAVUDINE
     Indication: HIV INFECTION
  2. DIDANOSINE (DIDANOSINE) [Suspect]
     Active Substance: DIDANOSINE
     Indication: HIV INFECTION
  3. EFAVIRENZ (EFAVIRENZ) UNKNOWN [Suspect]
     Active Substance: EFAVIRENZ
     Indication: HIV INFECTION

REACTIONS (2)
  - Portal hypertension [None]
  - Oesophageal varices haemorrhage [None]
